FAERS Safety Report 4662165-6 (Version None)
Quarter: 2005Q2

REPORT INFORMATION
  Report Type: 
  Country: None (occurrence: None)
  Receive Date: 20050512
  Receipt Date: 20050422
  Transmission Date: 20051028
  Serious: Yes (Other)
  Sender: FDA-Public Use
  Company Number: USA050496463

PATIENT
  Age: 35 Year
  Sex: Female

DRUGS (1)
  1. CYMBALTA [Suspect]
     Indication: BACK PAIN
     Dosage: 60 MG

REACTIONS (1)
  - LOSS OF CONSCIOUSNESS [None]
